FAERS Safety Report 10950981 (Version 2)
Quarter: 2015Q2

REPORT INFORMATION
  Report Type: Spontaneous
  Country: US (occurrence: US)
  Receive Date: 20150324
  Receipt Date: 20150403
  Transmission Date: 20150821
  Serious: Yes (Other)
  Sender: FDA-Public Use
  Company Number: US-PFIZER INC-2015101973

PATIENT
  Age: 48 Year
  Sex: Male

DRUGS (3)
  1. PHENYTOIN. [Suspect]
     Active Substance: PHENYTOIN
     Indication: SEIZURE
     Dosage: DOSES UP TO 400 MG PER DAY
  2. PHENYTOIN. [Suspect]
     Active Substance: PHENYTOIN
     Dosage: 300 MG, DAILY
  3. PHENYTOIN. [Suspect]
     Active Substance: PHENYTOIN
     Dosage: 250 MG, DAILY

REACTIONS (4)
  - Neurodegenerative disorder [Unknown]
  - Toxic encephalopathy [Unknown]
  - Polyneuropathy [Unknown]
  - Anticonvulsant drug level increased [Unknown]
